FAERS Safety Report 12696717 (Version 1)
Quarter: 2016Q3

REPORT INFORMATION
  Report Type: Spontaneous
  Country: FI (occurrence: FI)
  Receive Date: 20160830
  Receipt Date: 20160830
  Transmission Date: 20161109
  Serious: Yes (Hospitalization)
  Sender: FDA-Public Use
  Company Number: FI-ACCORD-043639

PATIENT
  Age: 70 Year
  Sex: Female

DRUGS (5)
  1. ORADEXON [Concomitant]
     Active Substance: DEXAMETHASONE
     Indication: PREMEDICATION
     Route: 042
     Dates: start: 20160805
  2. GRANISETRON [Concomitant]
     Active Substance: GRANISETRON
     Indication: NAUSEA
     Route: 048
     Dates: start: 20160805
  3. CETIMAX [Concomitant]
     Indication: PREMEDICATION
     Dosage: 10 MG
     Route: 048
     Dates: start: 20160805
  4. RANIMEX [Concomitant]
     Indication: PREMEDICATION
     Route: 042
     Dates: start: 20160805
  5. PACLITAXEL ACCORD [Suspect]
     Active Substance: PACLITAXEL
     Indication: ADENOCARCINOMA
     Dosage: 6 MG/ML
     Route: 042
     Dates: start: 20160805, end: 20160805

REACTIONS (6)
  - Erythema [Recovered/Resolved]
  - Back pain [Recovered/Resolved]
  - Malaise [Recovered/Resolved]
  - Depressed level of consciousness [Recovered/Resolved]
  - Cold sweat [Recovered/Resolved]
  - Nausea [Recovered/Resolved]

NARRATIVE: CASE EVENT DATE: 20160805
